FAERS Safety Report 19021927 (Version 3)
Quarter: 2024Q3

REPORT INFORMATION
  Report Type: Spontaneous
  Country: US (occurrence: US)
  Receive Date: 20210317
  Receipt Date: 20240725
  Transmission Date: 20241017
  Serious: Yes (Other)
  Sender: SUNOVION
  Company Number: US-SUNOVION-2021SUN000775

PATIENT

DRUGS (2)
  1. APTIOM [Suspect]
     Active Substance: ESLICARBAZEPINE ACETATE
     Indication: Partial seizures
     Dosage: 1000 MG (APTIOM 200MG AND APTIOM 800MG)
     Route: 048
  2. APTIOM [Suspect]
     Active Substance: ESLICARBAZEPINE ACETATE
     Dosage: 2 200 MG AND 1 800 MG
     Route: 048

REACTIONS (4)
  - Seizure [Unknown]
  - Fear [Unknown]
  - Therapy interrupted [Unknown]
  - Off label use [Unknown]
